FAERS Safety Report 9529278 (Version 3)
Quarter: 2015Q2

REPORT INFORMATION
  Report Type: Spontaneous
  Country: US (occurrence: US)
  Receive Date: 20130917
  Receipt Date: 20150525
  Transmission Date: 20150821
  Serious: Yes (Other)
  Sender: FDA-Public Use
  Company Number: US-JNJFOC-20130907113

PATIENT

DRUGS (4)
  1. TOPIRAMATE. [Suspect]
     Active Substance: TOPIRAMATE
     Indication: BIPOLAR DISORDER
     Dosage: AT A DOSE OF 25 MG/DAY, WEEKLY INCREASES OF 25 MG/DAY TO THE MAXIMUN DOSE OF 100 MG AS TOLERATED
     Route: 048
  2. OLANZAPINE. [Suspect]
     Active Substance: OLANZAPINE
     Indication: BIPOLAR DISORDER
     Dosage: 2.5 MG/DAY, WITH WEEKLY INCREASES OF 2.5 MG TO 5 MG PERMITTED AT THE DISCRETION OF THE CLINICIAN
     Route: 065
  3. ATOMOXETINE [Suspect]
     Active Substance: ATOMOXETINE
     Indication: ATTENTION DEFICIT/HYPERACTIVITY DISORDER
     Route: 065
  4. TOPIRAMATE. [Suspect]
     Active Substance: TOPIRAMATE
     Indication: WEIGHT INCREASED
     Dosage: AT A DOSE OF 25 MG/DAY, WEEKLY INCREASES OF 25 MG/DAY TO THE MAXIMUN DOSE OF 100 MG AS TOLERATED
     Route: 048

REACTIONS (26)
  - Nystagmus [Unknown]
  - Feeling abnormal [Unknown]
  - Blood cholesterol increased [Unknown]
  - Weight increased [Unknown]
  - Nasopharyngitis [Unknown]
  - Sedation [Unknown]
  - Pain [Unknown]
  - Drug ineffective [Unknown]
  - Akathisia [Unknown]
  - Urinary tract disorder [Unknown]
  - Agitation [Unknown]
  - Multiple allergies [Unknown]
  - Headache [Unknown]
  - Sleep disorder [Unknown]
  - Depression [Unknown]
  - Heart rate increased [Unknown]
  - Disorganised speech [Unknown]
  - Off label use [Unknown]
  - Blood triglycerides increased [Unknown]
  - Blood prolactin increased [Unknown]
  - Tremor [Unknown]
  - Increased appetite [Unknown]
  - Influenza [Unknown]
  - Infection [Unknown]
  - Gastrointestinal disorder [Unknown]
  - Skin disorder [Unknown]
